FAERS Safety Report 4639677-4 (Version None)
Quarter: 2005Q2

REPORT INFORMATION
  Report Type: 
  Country: None (occurrence: None)
  Receive Date: 20050415
  Receipt Date: 20050404
  Transmission Date: 20051028
  Serious: Yes (Disabling)
  Sender: FDA-Public Use
  Company Number: 05P-167-0292636-00

PATIENT
  Age: 57 Year
  Sex: Male
  Weight: 33.793 kg

DRUGS (4)
  1. HUMIRA [Suspect]
     Indication: RHEUMATOID ARTHRITIS
     Dosage: 40 MG, SUBCUTANEOUS
     Route: 058
     Dates: start: 20041210
  2. METHOTREXATE [Concomitant]
  3. PREDNISOLONE [Concomitant]
  4. PAROXETINE HYDROCHLORIDE [Concomitant]

REACTIONS (2)
  - CONDITION AGGRAVATED [None]
  - PRURITUS GENERALISED [None]
